FAERS Safety Report 18392124 (Version 1)
Quarter: 2020Q4

REPORT INFORMATION
  Report Type: Spontaneous
  Country: US (occurrence: US)
  Receive Date: 20201016
  Receipt Date: 20201016
  Transmission Date: 20210114
  Serious: Yes (Hospitalization)
  Sender: FDA-Public Use
  Company Number: None

PATIENT
  Age: 11 Year
  Sex: Female

DRUGS (2)
  1. ZARXIO [Concomitant]
     Active Substance: FILGRASTIM-SNDZ
     Dates: start: 20200212
  2. ZARXIO [Suspect]
     Active Substance: FILGRASTIM-SNDZ
     Indication: NEUTROPENIA
     Route: 058
     Dates: start: 20200212

REACTIONS (1)
  - Brain operation [None]

NARRATIVE: CASE EVENT DATE: 20201015
